FAERS Safety Report 13702340 (Version 1)
Quarter: 2017Q2

REPORT INFORMATION
  Report Type: Spontaneous
  Country: DE (occurrence: DE)
  Receive Date: 20170629
  Receipt Date: 20170629
  Transmission Date: 20170830
  Serious: No
  Sender: FDA-Public Use
  Company Number: DE-BIOGEN-2017BI00348383

PATIENT
  Age: 20 Year
  Sex: Male

DRUGS (3)
  1. ALPROLIX [Suspect]
     Active Substance: EFTRENONACOG ALFA
     Indication: FACTOR IX DEFICIENCY
     Dosage: 4500 IU (53 IU/KG)  X 1 PER WEEK
     Route: 065
     Dates: start: 201608
  2. ALPROLIX [Suspect]
     Active Substance: EFTRENONACOG ALFA
     Route: 065
  3. ALPROLIX [Suspect]
     Active Substance: EFTRENONACOG ALFA
     Route: 065

REACTIONS (7)
  - Ligament sprain [Recovered/Resolved]
  - Haemarthrosis [Recovered/Resolved]
  - Soft tissue swelling [Recovered/Resolved]
  - Joint effusion [Recovered/Resolved]
  - Contusion [Recovered/Resolved]
  - Ligament rupture [Recovered/Resolved]
  - Synovitis [Recovered/Resolved]

NARRATIVE: CASE EVENT DATE: 201607
